FAERS Safety Report 14161013 (Version 1)
Quarter: 2017Q4

REPORT INFORMATION
  Report Type: Spontaneous
  Country: US (occurrence: US)
  Receive Date: 20171106
  Receipt Date: 20171106
  Transmission Date: 20180321
  Serious: Yes (Other)
  Sender: FDA-Public Use
  Company Number: US-ABBVIE-17P-163-2151432-00

PATIENT
  Age: 15 Year
  Sex: Female
  Weight: 55 kg

DRUGS (10)
  1. LANTUS [Concomitant]
     Active Substance: INSULIN GLARGINE
     Indication: PRODUCT USED FOR UNKNOWN INDICATION
     Route: 065
     Dates: start: 20160908
  2. NOVOLOG [Concomitant]
     Active Substance: INSULIN ASPART
     Indication: PRODUCT USED FOR UNKNOWN INDICATION
     Route: 065
     Dates: start: 20160915
  3. METRELEPTIN [Suspect]
     Active Substance: METRELEPTIN
     Indication: PARTIAL LIPODYSTROPHY
     Route: 058
  4. METRELEPTIN [Suspect]
     Active Substance: METRELEPTIN
     Route: 058
     Dates: start: 20160901, end: 20160905
  5. FENOFIBRATE. [Suspect]
     Active Substance: FENOFIBRATE
     Indication: PRODUCT USED FOR UNKNOWN INDICATION
     Route: 065
     Dates: start: 20160902, end: 20161028
  6. ACTOS [Suspect]
     Active Substance: PIOGLITAZONE HYDROCHLORIDE
     Indication: DIABETES MELLITUS INADEQUATE CONTROL
     Route: 065
     Dates: start: 20160820, end: 20161005
  7. AMOXICILLIN. [Suspect]
     Active Substance: AMOXICILLIN
     Indication: PHARYNGITIS STREPTOCOCCAL
     Route: 065
     Dates: start: 20161026
  8. METFORMIN [Concomitant]
     Active Substance: METFORMIN HYDROCHLORIDE
     Indication: PRODUCT USED FOR UNKNOWN INDICATION
     Route: 065
     Dates: start: 20160720
  9. METRELEPTIN [Suspect]
     Active Substance: METRELEPTIN
     Indication: NON-ALCOHOLIC STEATOHEPATITIS
     Route: 058
     Dates: start: 20160830, end: 20160831
  10. ERGOCALCIFEROL. [Concomitant]
     Active Substance: ERGOCALCIFEROL
     Indication: PRODUCT USED FOR UNKNOWN INDICATION
     Route: 065
     Dates: start: 20160722

REACTIONS (1)
  - Autoimmune hepatitis [Unknown]

NARRATIVE: CASE EVENT DATE: 20161028
